FAERS Safety Report 9537398 (Version 1)
Quarter: 2013Q3

REPORT INFORMATION
  Report Type: Spontaneous
  Country: FR (occurrence: FR)
  Receive Date: 20130919
  Receipt Date: 20130919
  Transmission Date: 20140515
  Serious: Yes (Other)
  Sender: FDA-Public Use
  Company Number: PHHY2013FR103345

PATIENT
  Sex: Male
  Weight: 1 kg

DRUGS (4)
  1. EXJADE [Suspect]
     Indication: IRON OVERLOAD
     Dosage: UNK
     Route: 064
  2. MINIDRIL [Suspect]
     Dosage: UNK UKN, UNK
     Route: 064
  3. CERAZETTE [Suspect]
     Dosage: UNK UKN, UNK
     Route: 064
  4. SPECIAFOLDINE [Concomitant]
     Dosage: UNK UKN, UNK
     Route: 064

REACTIONS (3)
  - Low birth weight baby [Unknown]
  - Premature baby [Unknown]
  - Foetal exposure during pregnancy [Unknown]
